FAERS Safety Report 16596416 (Version 1)
Quarter: 2019Q3

REPORT INFORMATION
  Report Type: Spontaneous
  Country: FR (occurrence: FR)
  Receive Date: 20190719
  Receipt Date: 20190719
  Transmission Date: 20191004
  Serious: Yes (Other)
  Sender: FDA-Public Use
  Company Number: FR-TEVA-2019-FR-1078362

PATIENT
  Age: 82 Year
  Sex: Male
  Weight: 97 kg

DRUGS (3)
  1. DOXYCYCLINE. [Suspect]
     Active Substance: DOXYCYCLINE
     Indication: OSTEITIS
     Route: 048
     Dates: end: 20190524
  2. CIPROFLOXACINE [Suspect]
     Active Substance: CIPROFLOXACIN
     Indication: OSTEITIS
     Route: 048
     Dates: end: 20190524
  3. FORTUM 2 G, POUDRE POUR SOLUTION INJECTABLE (IV) [Suspect]
     Active Substance: CEFTAZIDIME
     Indication: OSTEITIS
     Route: 042
     Dates: end: 20190524

REACTIONS (1)
  - Acute generalised exanthematous pustulosis [Not Recovered/Not Resolved]

NARRATIVE: CASE EVENT DATE: 20190418
